FAERS Safety Report 5095891-8 (Version None)
Quarter: 2006Q3

REPORT INFORMATION
  Report Type: 
  Country: None (occurrence: None)
  Receive Date: 20060905
  Receipt Date: 20060824
  Transmission Date: 20061208
  Serious: Yes (Other)
  Sender: FDA-Public Use
  Company Number: US-BAYER-200615259BWH

PATIENT

DRUGS (1)
  1. CIPRO [Suspect]
     Indication: DRUG USE FOR UNKNOWN INDICATION

REACTIONS (3)
  - ACUTE MEGAKARYOCYTIC LEUKAEMIA [None]
  - EVAN'S SYNDROME [None]
  - THROMBOCYTOPENIA [None]
